FAERS Safety Report 16408617 (Version 2)
Quarter: 2019Q4

REPORT INFORMATION
  Report Type: Report from Study
  Country: US (occurrence: US)
  Receive Date: 20190610
  Receipt Date: 20191113
  Transmission Date: 20200122
  Serious: Yes (Other)
  Sender: FDA-Public Use
  Company Number: US-ROCHE-2265414

PATIENT
  Age: 36 Year
  Sex: Female
  Weight: 63.11 kg

DRUGS (5)
  1. OCREVUS [Suspect]
     Active Substance: OCRELIZUMAB
     Indication: RELAPSING-REMITTING MULTIPLE SCLEROSIS
     Dosage: INFUSE 300 MG DAY 1 + DAY 15, 30/AUG/2018 NEXT DOSE
     Route: 042
     Dates: start: 20180816
  2. TRAMADOL. [Concomitant]
     Active Substance: TRAMADOL
     Indication: PAIN
  3. PREDNISONE. [Suspect]
     Active Substance: PREDNISONE
     Indication: RASH
     Route: 048
     Dates: start: 201909
  4. TOPIRAMATE. [Concomitant]
     Active Substance: TOPIRAMATE
     Indication: HEADACHE
     Dosage: TAKES 3 PILLS OF 25 MG EVERY NIGHT
     Route: 048
     Dates: start: 2019
  5. PREDNISONE. [Suspect]
     Active Substance: PREDNISONE
     Indication: MULTIPLE SCLEROSIS RELAPSE
     Dosage: 3 TABLETS DAY X 1 WEEK;THEN 3 TABS EVERY 3 DAYS
     Route: 048
     Dates: start: 201811, end: 201811

REACTIONS (8)
  - Swelling face [Unknown]
  - Blood pressure increased [Unknown]
  - Rash [Recovered/Resolved]
  - Dyspnoea [Recovered/Resolved]
  - Multiple sclerosis relapse [Recovered/Resolved]
  - Sinusitis [Not Recovered/Not Resolved]
  - Weight increased [Not Recovered/Not Resolved]
  - Migraine [Recovered/Resolved]

NARRATIVE: CASE EVENT DATE: 201811
